FAERS Safety Report 5026755-3 (Version None)
Quarter: 2006Q2

REPORT INFORMATION
  Report Type: 
  Country: None (occurrence: None)
  Receive Date: 20060615
  Receipt Date: 20060502
  Transmission Date: 20061013
  Serious: Yes (Disabling, Other)
  Sender: FDA-Public Use
  Company Number: PT-MERCK-0604PRT00008

PATIENT
  Age: 20 Month
  Sex: Male
  Weight: 13 kg

DRUGS (5)
  1. SINGULAIR [Suspect]
     Indication: BRONCHIOLITIS
     Route: 048
     Dates: start: 20051201, end: 20060428
  2. SINGULAIR [Suspect]
     Indication: WHEEZING
     Route: 048
     Dates: start: 20051201, end: 20060428
  3. ALBUTEROL SULFATE [Concomitant]
     Route: 055
     Dates: start: 20060124, end: 20060131
  4. IPRATROPIUM BROMIDE [Concomitant]
     Route: 055
     Dates: start: 20060124, end: 20060131
  5. AMOXICILLIN [Concomitant]
     Indication: PYREXIA
     Route: 048
     Dates: start: 20060124, end: 20060131

REACTIONS (3)
  - BLINDNESS UNILATERAL [None]
  - STRABISMUS [None]
  - VISUAL DISTURBANCE [None]
